FAERS Safety Report 8892673 (Version 1)
Quarter: 2012Q4

REPORT INFORMATION
  Report Type: 
  Country: US (occurrence: US)
  Receive Date: 20121107
  Receipt Date: 20121107
  Transmission Date: 20130627
  Serious: No
  Sender: FDA-Public Use
  Company Number: US-AMGEN-USASP2011051492

PATIENT
  Age: 55 Year
  Sex: Female

DRUGS (6)
  1. ENBREL [Suspect]
     Indication: PRODUCT USED FOR UNKNOWN INDICATION
     Dosage: 50 mg, qwk
     Route: 058
  2. NAPROSYN [Concomitant]
     Dosage: 250 mg, UNK
  3. PROCHLORPERAZ [Concomitant]
     Dosage: 5 mg, UNK
  4. FLAXSEED OIL [Concomitant]
  5. VICODIN [Concomitant]
     Dosage: 500 mg, UNK
  6. HYDROCORTISONE                     /00028602/ [Concomitant]

REACTIONS (7)
  - Abdominal discomfort [Unknown]
  - Upper respiratory tract infection [Unknown]
  - Rash pruritic [Unknown]
  - Injection site warmth [Unknown]
  - Injection site erythema [Unknown]
  - Injection site swelling [Unknown]
  - Injection site pruritus [Unknown]
